FAERS Safety Report 11835789 (Version 1)
Quarter: 2015Q4

REPORT INFORMATION
  Report Type: Other
  Country: US (occurrence: US)
  Receive Date: 20151215
  Receipt Date: 20151215
  Transmission Date: 20160305
  Serious: Yes (Hospitalization)
  Sender: FDA-Public Use
  Company Number: US-ENDO PHARMACEUTICALS INC-2015-004854

PATIENT
  Age: 77 Year
  Sex: Male

DRUGS (1)
  1. ALLOPURINOL TABLETS [Suspect]
     Active Substance: ALLOPURINOL
     Indication: GOUT
     Route: 048

REACTIONS (1)
  - Drug reaction with eosinophilia and systemic symptoms [Not Recovered/Not Resolved]
